FAERS Safety Report 12487906 (Version 4)
Quarter: 2016Q3

REPORT INFORMATION
  Report Type: Report from Study
  Country: US (occurrence: US)
  Receive Date: 20160622
  Receipt Date: 20160704
  Transmission Date: 20161109
  Serious: Yes (Other)
  Sender: FDA-Public Use
  Company Number: US-AMGEN-USASL2016077283

PATIENT
  Age: 55 Year
  Sex: Female

DRUGS (3)
  1. TANZEUM [Suspect]
     Active Substance: ALBIGLUTIDE
     Indication: DIABETES MELLITUS
     Dosage: UNK
     Route: 065
  2. METHOTREXATE. [Suspect]
     Active Substance: METHOTREXATE
     Indication: PRODUCT USED FOR UNKNOWN INDICATION
     Dosage: UNK
     Route: 065
  3. ENBREL [Suspect]
     Active Substance: ETANERCEPT
     Indication: PSORIATIC ARTHROPATHY
     Dosage: 50 MG, QWK
     Route: 065
     Dates: start: 201210

REACTIONS (46)
  - Abdominal pain [Unknown]
  - Vomiting [Unknown]
  - Renal cyst [Unknown]
  - Pulse abnormal [Unknown]
  - Headache [Recovered/Resolved]
  - Gastrointestinal pain [Unknown]
  - Apnoea [Recovered/Resolved]
  - Diabetes mellitus [Unknown]
  - Autoimmune disorder [Unknown]
  - Hysterectomy [Unknown]
  - Blood urea increased [Recovered/Resolved]
  - Blood creatinine increased [Recovered/Resolved]
  - Abdominal rebound tenderness [Unknown]
  - Blood bilirubin abnormal [Unknown]
  - Hypophagia [Unknown]
  - Autoimmune thyroiditis [Unknown]
  - Fluid overload [Unknown]
  - Asthenia [Unknown]
  - Decreased appetite [Unknown]
  - Gait disturbance [Unknown]
  - Stress [Unknown]
  - Gallbladder operation [Unknown]
  - Gastric disorder [Unknown]
  - Tremor [Unknown]
  - Cold sweat [Unknown]
  - Visual impairment [Not Recovered/Not Resolved]
  - Thyroid mass [Unknown]
  - Ill-defined disorder [Unknown]
  - Malaise [Unknown]
  - Nail disorder [Unknown]
  - Sleep disorder [Unknown]
  - Abdominal pain lower [Unknown]
  - Drug dose omission [Unknown]
  - Unevaluable event [Unknown]
  - Nausea [Unknown]
  - Injection site pain [Unknown]
  - Alanine aminotransferase increased [Unknown]
  - Hepatic steatosis [Unknown]
  - Weight decreased [Unknown]
  - Gastrointestinal disorder [Unknown]
  - Aspartate aminotransferase abnormal [Recovering/Resolving]
  - Dehydration [Unknown]
  - Abdominal tenderness [Unknown]
  - Contusion [Unknown]
  - Tonsillectomy [Unknown]
  - Stenosis [Unknown]

NARRATIVE: CASE EVENT DATE: 201606
